FAERS Safety Report 17232487 (Version 16)
Quarter: 2020Q3

REPORT INFORMATION
  Report Type: Report from Study
  Country: US (occurrence: US)
  Receive Date: 20200103
  Receipt Date: 20200819
  Transmission Date: 20201102
  Serious: Yes (Hospitalization)
  Sender: FDA-Public Use
  Company Number: US-ACTELION-A-US2019-200016

PATIENT
  Age: 66 Year
  Sex: Female
  Weight: 55.33 kg

DRUGS (8)
  1. VELETRI [Suspect]
     Active Substance: EPOPROSTENOL
     Dosage: 18 NG/KG, PER MIN
     Route: 042
  2. TYVASO [Concomitant]
     Active Substance: TREPROSTINIL
  3. OPSUMIT [Suspect]
     Active Substance: MACITENTAN
     Indication: PULMONARY ARTERIAL HYPERTENSION
     Dosage: UNK
     Route: 048
     Dates: start: 20160428
  4. VELETRI [Suspect]
     Active Substance: EPOPROSTENOL
     Dosage: 10 NG/KG, PER MIN
     Route: 042
  5. VELETRI [Suspect]
     Active Substance: EPOPROSTENOL
     Dosage: 16 NG/KG, PER MIN
     Route: 042
  6. SILDENAFIL CITRATE. [Concomitant]
     Active Substance: SILDENAFIL CITRATE
  7. VELETRI [Suspect]
     Active Substance: EPOPROSTENOL
     Indication: PULMONARY ARTERIAL HYPERTENSION
     Dosage: 20 NG/KG, PER MIN
     Route: 042
  8. VELETRI [Suspect]
     Active Substance: EPOPROSTENOL
     Dosage: 8 NG/KG, PER MIN
     Route: 042

REACTIONS (33)
  - Paraesthesia [Unknown]
  - Palpitations [Unknown]
  - Malaise [Unknown]
  - Neuralgia [Unknown]
  - Cough [Unknown]
  - Dizziness [Unknown]
  - Flushing [Unknown]
  - Nocturnal dyspnoea [Unknown]
  - Condition aggravated [Unknown]
  - Nausea [Unknown]
  - Diarrhoea [Recovered/Resolved]
  - Vision blurred [Unknown]
  - Anxiety [Unknown]
  - Colonoscopy [Unknown]
  - Lethargy [Unknown]
  - Vomiting [Unknown]
  - Headache [Unknown]
  - Insomnia [Unknown]
  - Productive cough [Recovering/Resolving]
  - Sputum discoloured [Recovering/Resolving]
  - Catheter site pruritus [Unknown]
  - Pain [Unknown]
  - Rash pruritic [Unknown]
  - Pain in jaw [Recovering/Resolving]
  - Wheezing [Unknown]
  - Fatigue [Unknown]
  - Rash erythematous [Unknown]
  - Blood glucose decreased [Unknown]
  - Constipation [Unknown]
  - Epistaxis [Unknown]
  - Body temperature increased [Unknown]
  - Head discomfort [Unknown]
  - Chest pain [Unknown]

NARRATIVE: CASE EVENT DATE: 20191225
